FAERS Safety Report 19066056 (Version 1)
Quarter: 2021Q1

REPORT INFORMATION
  Report Type: Spontaneous
  Country: DE (occurrence: DE)
  Receive Date: 20210327
  Receipt Date: 20210327
  Transmission Date: 20210420
  Serious: Yes (Other)
  Sender: FDA-Public Use
  Company Number: DE-UCBSA-2021012676

PATIENT

DRUGS (2)
  1. PERAMPANEL [Concomitant]
     Active Substance: PERAMPANEL
     Indication: SEIZURE
     Dosage: UNKNOWN DOSE
  2. LEVETIRACETAM. [Suspect]
     Active Substance: LEVETIRACETAM
     Indication: SEIZURE
     Dosage: UNKNOWN DOSE

REACTIONS (19)
  - Dizziness [Unknown]
  - Aggression [Unknown]
  - Affective disorder [Unknown]
  - Personality disorder [Unknown]
  - Balance disorder [Unknown]
  - Dependence [Unknown]
  - Impulse-control disorder [Unknown]
  - Memory impairment [Unknown]
  - Somnolence [Unknown]
  - Seizure [Unknown]
  - Depression [Unknown]
  - Psychotic disorder due to a general medical condition [Unknown]
  - Irritability [Unknown]
  - Anxiety [Unknown]
  - Obsessive-compulsive disorder [Unknown]
  - Psychomotor skills impaired [Unknown]
  - Restlessness [Unknown]
  - Nervousness [Unknown]
  - Affect lability [Unknown]
